FAERS Safety Report 16834493 (Version 1)
Quarter: 2019Q3

REPORT INFORMATION
  Report Type: Spontaneous
  Country: US (occurrence: US)
  Receive Date: 20190920
  Receipt Date: 20190920
  Transmission Date: 20191005
  Serious: Yes (Hospitalization)
  Sender: FDA-Public Use
  Company Number: US-FRESENIUS MEDICAL CARE RENAL THERAPIES GROUP-FMC-1909-001219

PATIENT
  Sex: Female
  Weight: 40 kg

DRUGS (14)
  1. ACETAMINOPHEN. [Concomitant]
     Active Substance: ACETAMINOPHEN
     Route: 048
  2. CALCITRIOL. [Concomitant]
     Active Substance: CALCITRIOL
     Route: 048
  3. NIFEDIPINE. [Concomitant]
     Active Substance: NIFEDIPINE
     Route: 048
  4. CARVEDILOL. [Concomitant]
     Active Substance: CARVEDILOL
     Route: 048
  5. FLUTICASONE. [Concomitant]
     Active Substance: FLUTICASONE
  6. ALBUTEROL. [Concomitant]
     Active Substance: ALBUTEROL
     Dosage: INHALE 2 PUFFS EVERY 6 HOURS AS NEEDED
  7. IPRATROPIUM ALBUTEROL [Concomitant]
     Active Substance: ALBUTEROL\IPRATROPIUM
  8. CALCIUM ACETATE. [Concomitant]
     Active Substance: CALCIUM ACETATE
     Route: 048
  9. LISINOPRIL. [Concomitant]
     Active Substance: LISINOPRIL
     Route: 048
  10. FERROUS SULFATE. [Concomitant]
     Active Substance: FERROUS SULFATE
     Route: 048
  11. NIFEDIPINE. [Concomitant]
     Active Substance: NIFEDIPINE
     Route: 048
  12. DELFLEX WITH DEXTROSE 1.5% LOW MAGNESIUM LOW CALCIUM [Suspect]
     Active Substance: CALCIUM CHLORIDE\DEXTROSE\MAGNESIUM CHLORIDE\SODIUM CHLORIDE\SODIUM LACTATE
     Indication: END STAGE RENAL DISEASE
     Dosage: 4 EXCHANGES OF 1.3 L EVERY NIGHT WITH 8 MINUTE FILL AND DRAIN TIME AND 1 HOUR 46 MINUTE DWELL TIME
     Route: 033
  13. CALCIUM ACETATE. [Concomitant]
     Active Substance: CALCIUM ACETATE
     Route: 048
  14. LORATADINE. [Concomitant]
     Active Substance: LORATADINE
     Route: 048

REACTIONS (2)
  - Colitis [Recovering/Resolving]
  - Gastritis [Recovering/Resolving]
